FAERS Safety Report 24851569 (Version 3)
Quarter: 2025Q1

REPORT INFORMATION
  Report Type: Spontaneous
  Country: AU (occurrence: AU)
  Receive Date: 20250116
  Receipt Date: 20250320
  Transmission Date: 20250408
  Serious: No
  Sender: MYLAN
  Company Number: AU-MYLANLABS-2025M1002039

PATIENT

DRUGS (1)
  1. EPIPEN JR [Suspect]
     Active Substance: EPINEPHRINE
     Indication: Product used for unknown indication

REACTIONS (1)
  - Product quality issue [Unknown]
